FAERS Safety Report 8332657-7 (Version None)
Quarter: 2012Q1

REPORT INFORMATION
  Report Type: 
  Country: None (occurrence: None)
  Receive Date: 20120327
  Receipt Date: 20110105
  Transmission Date: 20120608
  Serious: Yes (Other)
  Sender: FDA-Public Use
  Company Number: PHEH2009US17349

PATIENT
  Age: 51 Year
  Sex: Male
  Weight: 90 kg

DRUGS (4)
  1. GLEEVEC [Suspect]
     Indication: LEUKAEMIA
     Dosage: 400 MG, DAILY, ORAL; 400 MG, DAILY, ORAL
     Route: 048
     Dates: start: 20100722
  2. GLEEVEC [Suspect]
     Indication: LEUKAEMIA
     Dosage: 400 MG, DAILY, ORAL; 400 MG, DAILY, ORAL
     Route: 048
     Dates: start: 20090401, end: 20100520
  3. MECLIZINE [Concomitant]
  4. TRAZODONE HCL [Concomitant]

REACTIONS (8)
  - DIARRHOEA [None]
  - MUSCLE SPASMS [None]
  - HEADACHE [None]
  - ABDOMINAL DISCOMFORT [None]
  - BONE PAIN [None]
  - DIVERTICULITIS [None]
  - MYALGIA [None]
  - NAUSEA [None]
